FAERS Safety Report 7401865 (Version 18)
Quarter: 2012Q4

REPORT INFORMATION
  Report Type: 
  Country: CA (occurrence: CA)
  Receive Date: 20100527
  Receipt Date: 20121030
  Transmission Date: 20130627
  Serious: Yes (Other)
  Sender: FDA-Public Use
  Company Number: PHHY2009CA19623

PATIENT
  Sex: Female

DRUGS (16)
  1. SANDOSTATIN LAR [Suspect]
     Indication: ACROMEGALY
     Dosage: 20 mg, Every 4 weeks
     Route: 030
     Dates: start: 20070712
  2. SANDOSTATIN LAR [Suspect]
     Dosage: 30 mg, Every 4 weeks
     Route: 030
     Dates: start: 20070712
  3. SANDOSTATIN LAR [Suspect]
     Dosage: 10 mg, BIW
     Route: 030
  4. SANDOSTATIN LAR [Suspect]
     Dosage: 10 mg, QMO
     Route: 030
  5. SANDOSTATIN LAR [Suspect]
     Dosage: 20 mg, QMO
     Route: 030
  6. AVAPRO [Concomitant]
  7. NEXIUM [Concomitant]
  8. SYNTHROID [Concomitant]
  9. LIPITOR [Concomitant]
  10. ASA [Concomitant]
  11. APRATIA [Concomitant]
  12. VITAMIN D [Concomitant]
  13. GAVISCON [Concomitant]
  14. ATIVAN [Concomitant]
  15. GLUMETZA [Concomitant]
     Indication: DIABETES MELLITUS
  16. ANTIBIOTICS [Concomitant]

REACTIONS (26)
  - Pituitary tumour [Unknown]
  - Blood pressure increased [Unknown]
  - Fall [Unknown]
  - Malaise [Unknown]
  - Contusion [Unknown]
  - Gastrooesophageal reflux disease [Unknown]
  - Migraine [Unknown]
  - Neoplasm [Unknown]
  - Headache [Unknown]
  - Fatigue [Not Recovered/Not Resolved]
  - Arrhythmia [Unknown]
  - Blood glucose increased [Unknown]
  - Nausea [Not Recovered/Not Resolved]
  - Diarrhoea [Not Recovered/Not Resolved]
  - Crying [Unknown]
  - Nasopharyngitis [Unknown]
  - Accident at work [Unknown]
  - Back pain [Unknown]
  - Tremor [Unknown]
  - Palpitations [Unknown]
  - Pain [Unknown]
  - Tooth infection [Unknown]
  - Injection site pain [Unknown]
  - Abdominal distension [Unknown]
  - Asthenia [Unknown]
  - Abdominal pain upper [Unknown]
